FAERS Safety Report 14773683 (Version 1)
Quarter: 2018Q2

REPORT INFORMATION
  Report Type: Spontaneous
  Country: US (occurrence: US)
  Receive Date: 20180418
  Receipt Date: 20180418
  Transmission Date: 20180711
  Serious: Yes (Death, Other)
  Sender: FDA-Public Use
  Company Number: PHHY2018US061393

PATIENT

DRUGS (1)
  1. CARBOPLATIN. [Suspect]
     Active Substance: CARBOPLATIN
     Indication: MEDULLOBLASTOMA
     Dosage: UNK
     Route: 065

REACTIONS (9)
  - Bacterial sepsis [Fatal]
  - Osteomyelitis [Unknown]
  - Asthenia [Unknown]
  - Spinal cord oedema [Unknown]
  - Paraesthesia [Unknown]
  - Myelopathy [Unknown]
  - Pancytopenia [Unknown]
  - Product use in unapproved indication [Unknown]
  - Fungal sepsis [Fatal]
